FAERS Safety Report 25937433 (Version 1)
Quarter: 2025Q4

REPORT INFORMATION
  Report Type: Report from Study
  Country: JP (occurrence: JP)
  Receive Date: 20251018
  Receipt Date: 20251018
  Transmission Date: 20260118
  Serious: Yes (Death, Hospitalization, Other)
  Sender: ABBVIE
  Company Number: JP-TAKEDA-2021TJP043299

PATIENT
  Age: 73 Year
  Sex: Male
  Weight: 56.4 kg

DRUGS (1)
  1. LEUPROLIDE ACETATE [Suspect]
     Active Substance: LEUPROLIDE ACETATE
     Indication: Bulbospinal muscular atrophy congenital
     Dosage: 11.25 MILLIGRAM, Q3MONTHS
     Route: 058
     Dates: start: 20180111, end: 20210701

REACTIONS (5)
  - Pneumonia aspiration [Fatal]
  - Gastrooesophageal reflux disease [Unknown]
  - Pneumonia aspiration [Fatal]
  - COVID-19 [Fatal]
  - Fracture [Recovered/Resolved]

NARRATIVE: CASE EVENT DATE: 20210301
